FAERS Safety Report 13103363 (Version 2)
Quarter: 2017Q2

REPORT INFORMATION
  Report Type: Spontaneous
  Country: US (occurrence: US)
  Receive Date: 20170110
  Receipt Date: 20170522
  Transmission Date: 20170830
  Serious: No
  Sender: FDA-Public Use
  Company Number: US-TEVA-717729ACC

PATIENT
  Sex: Male
  Weight: 86.26 kg

DRUGS (2)
  1. PROAIR HFA [Suspect]
     Active Substance: ALBUTEROL SULFATE
     Indication: BRONCHIAL DISORDER
  2. PROAIR HFA [Suspect]
     Active Substance: ALBUTEROL SULFATE
     Indication: VIRAL UPPER RESPIRATORY TRACT INFECTION

REACTIONS (2)
  - Drug ineffective [Unknown]
  - Product physical issue [Unknown]
